FAERS Safety Report 22300617 (Version 1)
Quarter: 2023Q2

REPORT INFORMATION
  Report Type: Report from Study
  Country: RO (occurrence: RO)
  Receive Date: 20230509
  Receipt Date: 20230509
  Transmission Date: 20230722
  Serious: Yes (Death)
  Sender: FDA-Public Use
  Company Number: RO-002147023-NVSC2023RO022652

PATIENT

DRUGS (1)
  1. RUXOLITINIB [Suspect]
     Active Substance: RUXOLITINIB
     Indication: Product used for unknown indication
     Dosage: 10 MG
     Route: 065
     Dates: start: 2019

REACTIONS (3)
  - Death [Fatal]
  - Disease progression [Unknown]
  - Product supply issue [Unknown]

NARRATIVE: CASE EVENT DATE: 20230427
